FAERS Safety Report 16206331 (Version 2)
Quarter: 2019Q3

REPORT INFORMATION
  Report Type: Report from Study
  Country: US (occurrence: US)
  Receive Date: 20190417
  Receipt Date: 20190725
  Transmission Date: 20191004
  Serious: Yes (Hospitalization)
  Sender: FDA-Public Use
  Company Number: US-BAXTER-2019BAX005356

PATIENT
  Sex: Female
  Weight: 64.6 kg

DRUGS (14)
  1. CYCLOPHOSPHAMIDE FOR INJECTION, USP [Suspect]
     Active Substance: CYCLOPHOSPHAMIDE
     Indication: ACUTE LYMPHOCYTIC LEUKAEMIA
     Dosage: COURSE I
     Route: 065
     Dates: start: 20181018
  2. METHOTREXATE SODIUM. [Suspect]
     Active Substance: METHOTREXATE SODIUM
     Dosage: COURSE II; TOTAL DOSE ADMINISTERED THIS COURSE: 45 MG
     Route: 065
     Dates: start: 20190123, end: 20190207
  3. CYCLOPHOSPHAMIDE FOR INJECTION, USP [Suspect]
     Active Substance: CYCLOPHOSPHAMIDE
     Dosage: COURSE II; TOTAL DOSE ADMINISTERED THIS COURSE: 1740 MG
     Route: 065
     Dates: start: 20190123, end: 20190123
  4. DAUNORUBICIN [Suspect]
     Active Substance: DAUNORUBICIN
     Indication: ACUTE LYMPHOCYTIC LEUKAEMIA
     Dosage: COURSE I AND II; TOTAL DOSE ADMINISTERED IN SECOND COURSE: 0MG
     Route: 065
     Dates: start: 20181018, end: 20181108
  5. MERCAPTOPURINE. [Suspect]
     Active Substance: MERCAPTOPURINE
     Indication: ACUTE LYMPHOCYTIC LEUKAEMIA
     Dosage: COURSE I AND II, TOTAL DOSE ADMINISTERED THIS COURSE: 1450 MG, LAST ADMINISTERED DATE: 05FEB2018.
     Route: 065
     Dates: start: 20181018, end: 20190205
  6. VINCRISTINE SULFATE. [Suspect]
     Active Substance: VINCRISTINE SULFATE
     Dosage: COURSE II; TOTAL DOSE ADMINISTERED THIS COURSE: 2 MG
     Route: 065
     Dates: start: 20190206, end: 20190206
  7. INOTUZUMAB OZOGAMICIN [Suspect]
     Active Substance: INOTUZUMAB OZOGAMICIN
     Indication: ACUTE LYMPHOCYTIC LEUKAEMIA
     Dosage: COURSE I AND II, TOTAL DOSE ADMINISTERED IN SECOND COURSE: 0MG
     Route: 065
     Dates: start: 20181119, end: 20190102
  8. CYTARABINE. [Suspect]
     Active Substance: CYTARABINE
     Indication: ACUTE LYMPHOCYTIC LEUKAEMIA
     Dosage: COURSE I
     Route: 065
     Dates: start: 20181018
  9. ONCASPAR [Suspect]
     Active Substance: PEGASPARGASE
     Indication: ACUTE LYMPHOCYTIC LEUKAEMIA
     Dosage: COURSE I
     Route: 065
     Dates: start: 20181018
  10. CYTARABINE. [Suspect]
     Active Substance: CYTARABINE
     Dosage: COURSE II; TOTAL DOSE ADMINISTERED THIS COURSE: 1048 MG
     Route: 065
     Dates: start: 20190123, end: 20190202
  11. ONCASPAR [Suspect]
     Active Substance: PEGASPARGASE
     Dosage: COURSE II; TOTAL DOSE ADMINISTERED THIS COURSE: 3450 UNIT
     Route: 065
     Dates: start: 20190206, end: 20190206
  12. VINCRISTINE SULFATE. [Suspect]
     Active Substance: VINCRISTINE SULFATE
     Indication: ACUTE LYMPHOCYTIC LEUKAEMIA
     Dosage: COURSE I
     Route: 065
     Dates: start: 20181018
  13. METHOTREXATE SODIUM. [Suspect]
     Active Substance: METHOTREXATE SODIUM
     Indication: ACUTE LYMPHOCYTIC LEUKAEMIA
     Dosage: COURSE I
     Route: 065
     Dates: start: 20181018
  14. DEXAMETHASONE. [Suspect]
     Active Substance: DEXAMETHASONE
     Indication: ACUTE LYMPHOCYTIC LEUKAEMIA
     Dosage: COURSE I AND II; TOTAL DOSE ADMINISTERED IN SECOND COURSE: 0MG
     Route: 065
     Dates: start: 20181018, end: 20181108

REACTIONS (3)
  - Febrile neutropenia [Recovered/Resolved]
  - Fungaemia [Recovered/Resolved]
  - Depressed level of consciousness [Recovered/Resolved]

NARRATIVE: CASE EVENT DATE: 20190211
